FAERS Safety Report 7292527-2 (Version None)
Quarter: 2011Q1

REPORT INFORMATION
  Report Type: 
  Country: None (occurrence: None)
  Receive Date: 20110215
  Receipt Date: 20110203
  Transmission Date: 20110831
  Serious: Yes (Death, Life-Threatening, Other)
  Sender: FDA-Public Use
  Company Number: NL-CELGENEUS-114-21880-10120993

PATIENT
  Sex: Female
  Weight: 87 kg

DRUGS (3)
  1. CYTARABINE [Suspect]
     Route: 051
     Dates: start: 20101201, end: 20101206
  2. REVLIMID [Suspect]
     Route: 048
  3. DAUNORUBICIN [Suspect]
     Route: 065

REACTIONS (1)
  - DEVICE RELATED SEPSIS [None]
